FAERS Safety Report 21191469 (Version 1)
Quarter: 2022Q3

REPORT INFORMATION
  Report Type: Spontaneous
  Country: CN (occurrence: CN)
  Receive Date: 20220809
  Receipt Date: 20220809
  Transmission Date: 20221027
  Serious: Yes (Hospitalization, Other)
  Sender: FDA-Public Use
  Company Number: None

PATIENT
  Age: 37 Year
  Sex: Female

DRUGS (2)
  1. CYCLOPHOSPHAMIDE [Suspect]
     Active Substance: CYCLOPHOSPHAMIDE
     Indication: Breast neoplasm
     Dosage: DOSAGE FORM- POWDER INJECTION, 900 MG (ALSO REPORTED AS 0.9 G), QD (DILUTED WITH 0.9% SODIUM CHLORID
     Route: 041
     Dates: start: 20220611, end: 20220611
  2. SODIUM CHLORIDE [Suspect]
     Active Substance: SODIUM CHLORIDE
     Indication: Medication dilution
     Dosage: DOSAGE FORM- INJECTION, QD (DILUTED WITH CYCLOPHOSPHAMIDE 900 MG)
     Route: 041
     Dates: start: 20220611, end: 20220611

REACTIONS (2)
  - Hepatic function abnormal [Recovering/Resolving]
  - Drug-induced liver injury [Unknown]

NARRATIVE: CASE EVENT DATE: 20220704
